FAERS Safety Report 14201281 (Version 3)
Quarter: 2019Q1

REPORT INFORMATION
  Report Type: Spontaneous
  Country: US (occurrence: US)
  Receive Date: 20171117
  Receipt Date: 20190305
  Transmission Date: 20190417
  Serious: No
  Sender: FDA-Public Use
  Company Number: US-PFIZER INC-2017489143

PATIENT
  Age: 68 Year
  Sex: Male
  Weight: 70.3 kg

DRUGS (1)
  1. ELELYSO [Suspect]
     Active Substance: TALIGLUCERASE ALFA
     Dosage: UNK

REACTIONS (6)
  - Asthenia [Unknown]
  - Memory impairment [Unknown]
  - Weight decreased [Unknown]
  - Tremor [Unknown]
  - Pancreatic disorder [Unknown]
  - Cholelithiasis [Unknown]
